FAERS Safety Report 4403583-0 (Version None)
Quarter: 2004Q3

REPORT INFORMATION
  Report Type: 
  Country: None (occurrence: None)
  Receive Date: 20040721
  Receipt Date: 20040708
  Transmission Date: 20050211
  Serious: Yes (Other)
  Sender: FDA-Public Use
  Company Number: GB-GLAXOSMITHKLINE-B0338402A

PATIENT
  Age: 89 Year
  Sex: Female

DRUGS (7)
  1. SEROXAT [Suspect]
     Indication: DEPRESSION
     Route: 048
  2. MULTI-VITAMIN [Concomitant]
     Route: 065
  3. CALCICHEW D3 FORTE [Concomitant]
     Route: 065
  4. ASCORBIC ACID [Concomitant]
     Dosage: 1MG PER DAY
     Route: 065
  5. ALENDRONATE SODIUM [Concomitant]
     Dosage: 70MG WEEKLY
     Route: 065
  6. (HEALTH FOOD) [Concomitant]
     Route: 065
  7. EYE DROPS [Concomitant]

REACTIONS (6)
  - C-REACTIVE PROTEIN INCREASED [None]
  - INFECTION [None]
  - ORAL CANDIDIASIS [None]
  - RED BLOOD CELL SEDIMENTATION RATE INCREASED [None]
  - SKIN LESION [None]
  - STEVENS-JOHNSON SYNDROME [None]
